FAERS Safety Report 16607568 (Version 1)
Quarter: 2019Q3

REPORT INFORMATION
  Report Type: Spontaneous
  Country: ES (occurrence: ES)
  Receive Date: 20190722
  Receipt Date: 20190722
  Transmission Date: 20191004
  Serious: Yes (Other)
  Sender: FDA-Public Use
  Company Number: ES-ACCORD-143752

PATIENT
  Age: 42 Year
  Sex: Female

DRUGS (1)
  1. CISPLATIN. [Suspect]
     Active Substance: CISPLATIN
     Indication: NASOPHARYNGEAL CANCER
     Dosage: 140 MG EVERY 21 DAYS
     Route: 042
     Dates: start: 20190523, end: 20190613

REACTIONS (1)
  - Neurosensory hypoacusis [Recovering/Resolving]

NARRATIVE: CASE EVENT DATE: 20190703
